FAERS Safety Report 8912154 (Version 2)
Quarter: 2012Q4

REPORT INFORMATION
  Report Type: Report from Study
  Country: JP (occurrence: JP)
  Receive Date: 20121116
  Receipt Date: 20121127
  Transmission Date: 20130627
  Serious: Yes (Hospitalization)
  Sender: FDA-Public Use
  Company Number: JP-ABBOTT-12P-087-1005149-00

PATIENT
  Age: 34 Year
  Sex: Female
  Weight: 40 kg

DRUGS (12)
  1. HUMIRA [Suspect]
     Indication: CROHN^S DISEASE
     Route: 058
     Dates: start: 20101201, end: 20101201
  2. HUMIRA [Suspect]
     Dates: start: 20101215, end: 20101215
  3. HUMIRA [Suspect]
     Dates: start: 20101229
  4. AZATHIOPRINE [Concomitant]
     Indication: CROHN^S DISEASE
     Route: 048
  5. MESALAZINE [Concomitant]
     Indication: CROHN^S DISEASE
     Route: 048
  6. METRONIDAZOLE [Concomitant]
     Indication: PRODUCT USED FOR UNKNOWN INDICATION
     Route: 048
     Dates: end: 20110322
  7. PAROXETINE HYDROCHLORIDE HEMIHYDRATE [Concomitant]
     Indication: PRODUCT USED FOR UNKNOWN INDICATION
     Route: 048
  8. BROTIZOLAM [Concomitant]
     Indication: PRODUCT USED FOR UNKNOWN INDICATION
     Route: 048
  9. RABEPRAZOLE SODIUM [Concomitant]
     Indication: PROPHYLAXIS
     Route: 048
  10. FLUNITRAZEPAM [Concomitant]
     Indication: PRODUCT USED FOR UNKNOWN INDICATION
     Route: 048
  11. REBAMIPIDE [Concomitant]
     Indication: PROPHYLAXIS
     Route: 048
  12. ASCORBIC ACID [Concomitant]
     Indication: PROPHYLAXIS
     Route: 048

REACTIONS (1)
  - Vestibular neuronitis [Recovered/Resolved]
